FAERS Safety Report 20192701 (Version 1)
Quarter: 2021Q4

REPORT INFORMATION
  Report Type: Spontaneous
  Country: US (occurrence: US)
  Receive Date: 20211216
  Receipt Date: 20211216
  Transmission Date: 20220303
  Serious: Yes (Other)
  Sender: FDA-Public Use
  Company Number: US-PFIZER INC-2019384782

PATIENT
  Age: 61 Year
  Sex: Female
  Weight: 79 kg

DRUGS (3)
  1. PREMARIN [Suspect]
     Active Substance: ESTROGENS, CONJUGATED
     Indication: Pruritus
     Dosage: UNK, WEEKLY [APPLIED ONCE A WEEK]
     Route: 067
     Dates: start: 201902
  2. PREMARIN [Suspect]
     Active Substance: ESTROGENS, CONJUGATED
     Indication: Postmenopause
     Dosage: APPLY A PEA SIZE THREE TIMES A WEEK. IT MAYBE BIGGER THAN A PEA SIZE, MORE LIKE A PEA AND A HALF
     Route: 067
  3. PREMARIN [Suspect]
     Active Substance: ESTROGENS, CONJUGATED
     Indication: Skin atrophy
     Dosage: UNK
     Route: 067

REACTIONS (3)
  - Vulval cancer [Unknown]
  - Rheumatoid arthritis [Unknown]
  - Product use issue [Unknown]
